FAERS Safety Report 9269315 (Version 1)
Quarter: 2013Q2

REPORT INFORMATION
  Report Type: Spontaneous
  Country: US (occurrence: US)
  Receive Date: 20130503
  Receipt Date: 20130503
  Transmission Date: 20140414
  Serious: No
  Sender: FDA-Public Use
  Company Number: US-PFIZER INC-2013136979

PATIENT
  Age: 93 Year
  Sex: Female

DRUGS (1)
  1. NEURONTIN [Suspect]
     Dosage: 300 MG, 1X/DAY (3 100MG TABLETS A DAY)

REACTIONS (4)
  - Drug ineffective [Unknown]
  - Pain [Unknown]
  - Crying [Unknown]
  - Neuropathy peripheral [Unknown]
